FAERS Safety Report 17579432 (Version 1)
Quarter: 2020Q1

REPORT INFORMATION
  Report Type: Spontaneous
  Country: US (occurrence: US)
  Receive Date: 20200325
  Receipt Date: 20200325
  Transmission Date: 20200409
  Serious: No
  Sender: FDA-Public Use
  Company Number: US-ALLERGAN-1925053US

PATIENT
  Sex: Male
  Weight: 88.44 kg

DRUGS (3)
  1. OXYBUTYNIN PCH - BP [Suspect]
     Active Substance: OXYBUTYNIN
     Indication: HYPERTONIC BLADDER
     Route: 065
  2. ELIQUIS [Suspect]
     Active Substance: APIXABAN
     Indication: ATRIAL FIBRILLATION
     Dosage: 2 DF, PER DAY 1 IN THE MORNING AND 1 AT NIGHT
     Route: 048
  3. CARVEDILOL. [Suspect]
     Active Substance: CARVEDILOL
     Indication: BLOOD PRESSURE ABNORMAL
     Dosage: 2 DF, PER DAY, 1 IN THE MORNING AND 1 AT NIGHT
     Route: 048
     Dates: start: 2015

REACTIONS (1)
  - Dry mouth [Recovering/Resolving]
